FAERS Safety Report 9130215 (Version 2)
Quarter: 2013Q1

REPORT INFORMATION
  Report Type: Report from Study
  Country: FR (occurrence: FR)
  Receive Date: 20130228
  Receipt Date: 20130306
  Transmission Date: 20140127
  Serious: Yes (Other)
  Sender: FDA-Public Use
  Company Number: FR-ROCHE-1196204

PATIENT
  Age: 50 Year
  Sex: Male
  Weight: 65.6 kg

DRUGS (5)
  1. PEG-INTERFERON ALFA 2A [Suspect]
     Indication: HEPATITIS C
     Route: 058
     Dates: start: 20110106, end: 20110404
  2. RIBAVIRIN [Suspect]
     Indication: HEPATITIS C
     Route: 048
     Dates: start: 20110106, end: 20110404
  3. NEORECORMON [Concomitant]
     Indication: ANAEMIA
     Route: 058
     Dates: start: 20110310, end: 20110401
  4. LASILIX [Concomitant]
     Indication: OEDEMA
     Route: 048
  5. ALDACTONE [Concomitant]
     Indication: OEDEMA
     Route: 048

REACTIONS (1)
  - Hepatic cancer [Unknown]
